FAERS Safety Report 4864831-6 (Version None)
Quarter: 2005Q4

REPORT INFORMATION
  Report Type: 
  Country: None (occurrence: None)
  Receive Date: 20051201
  Receipt Date: 20050706
  Transmission Date: 20060501
  Serious: No
  Sender: FDA-Public Use
  Company Number: 2005PV000293

PATIENT
  Age: 44 Year
  Sex: Female
  Weight: 111.1313 kg

DRUGS (5)
  1. BYETTA [Suspect]
     Indication: DIABETES MELLITUS NON-INSULIN-DEPENDENT
     Dosage: 5 MCG; BID; SC
     Route: 058
     Dates: start: 20050608, end: 20050706
  2. ADVAIR DISKUS 100/50 [Concomitant]
  3. ALBUTEROL SULFATE AUTOHALER [Concomitant]
  4. ALLEGRA [Concomitant]
  5. AMARYL [Concomitant]

REACTIONS (3)
  - INJECTION SITE IRRITATION [None]
  - INJECTION SITE PRURITUS [None]
  - INJECTION SITE URTICARIA [None]
